FAERS Safety Report 19475583 (Version 1)
Quarter: 2021Q2

REPORT INFORMATION
  Report Type: Spontaneous
  Country: US (occurrence: US)
  Receive Date: 20210630
  Receipt Date: 20210630
  Transmission Date: 20210717
  Serious: Yes (Disabling, Other)
  Sender: FDA-Public Use
  Company Number: US-ACCORD-229389

PATIENT
  Age: 34 Year
  Sex: Female

DRUGS (2)
  1. FILGRASTIM [Concomitant]
     Active Substance: FILGRASTIM
     Indication: CONGENITAL APLASTIC ANAEMIA
  2. PACLITAXEL/PACLITAXEL LIPOSOME [Suspect]
     Active Substance: PACLITAXEL
     Indication: INVASIVE DUCTAL BREAST CARCINOMA

REACTIONS (2)
  - Gait inability [Recovering/Resolving]
  - Neuropathy peripheral [Recovering/Resolving]
